FAERS Safety Report 8928678 (Version 1)
Quarter: 2012Q4

REPORT INFORMATION
  Report Type: Spontaneous
  Country: IT (occurrence: None)
  Receive Date: 20121121
  Receipt Date: 20121121
  Transmission Date: 20130627
  Serious: Yes (Hospitalization)
  Sender: FDA-Public Use
  Company Number: DSA_60918_2012

PATIENT
  Age: 41 Year
  Sex: Male

DRUGS (2)
  1. ELONTRIL [Suspect]
     Indication: INTENTIONAL SELF-INJURY
     Dates: start: 20120928, end: 20120928
  2. CLOTIAPINE [Suspect]
     Indication: INTENTIONAL SELF-INJURY
     Dates: start: 20120928, end: 20120928

REACTIONS (3)
  - Somnolence [None]
  - Intentional overdose [None]
  - Intentional self-injury [None]
